FAERS Safety Report 18148661 (Version 5)
Quarter: 2020Q4

REPORT INFORMATION
  Report Type: Spontaneous
  Country: US (occurrence: US)
  Receive Date: 20200814
  Receipt Date: 20201116
  Transmission Date: 20210113
  Serious: No
  Sender: FDA-Public Use
  Company Number: US-BAUSCH-BL-2020-022505

PATIENT
  Age: 75 Year
  Sex: Female
  Weight: 50.85 kg

DRUGS (2)
  1. LACRISERT [Suspect]
     Active Substance: HYDROXYPROPYL CELLULOSE
     Indication: SJOGREN^S SYNDROME
     Dosage: STARTED OVER FIFTEEN YEARS OR MORE AGO (ONE OPHTHALMIC INSERT IN EACH EYE TWICE DAILY)
     Route: 047
     Dates: end: 202008
  2. LOSARTAN POTASSIUM. [Concomitant]
     Active Substance: LOSARTAN POTASSIUM
     Indication: BLOOD PRESSURE ABNORMAL
     Dosage: STARTED MAY BE 10 YEARS AGO
     Dates: start: 2010

REACTIONS (5)
  - Product availability issue [Unknown]
  - Dry eye [Not Recovered/Not Resolved]
  - Ocular discomfort [Not Recovered/Not Resolved]
  - Eye irritation [Not Recovered/Not Resolved]
  - Therapy interrupted [Unknown]

NARRATIVE: CASE EVENT DATE: 2020
